FAERS Safety Report 22677276 (Version 2)
Quarter: 2023Q4

REPORT INFORMATION
  Report Type: Spontaneous
  Country: US (occurrence: US)
  Receive Date: 20230706
  Receipt Date: 20231006
  Transmission Date: 20240110
  Serious: Yes (Other)
  Sender: FDA-Public Use
  Company Number: US-SUN PHARMACEUTICAL INDUSTRIES LTD-2023R1-397572

PATIENT
  Age: 71 Year
  Sex: Male

DRUGS (3)
  1. AMPHOTERICIN B [Suspect]
     Active Substance: AMPHOTERICIN B
     Indication: Pneumonia
     Dosage: UNK
     Route: 065
  2. MEROPENEM [Suspect]
     Active Substance: MEROPENEM
     Indication: Pneumonia
     Dosage: UNK
     Route: 065
  3. VORICONAZOLE [Suspect]
     Active Substance: VORICONAZOLE
     Indication: Pneumonia
     Dosage: UNK
     Route: 065

REACTIONS (4)
  - Fibrosis [Unknown]
  - Aspergillus infection [Unknown]
  - Inflammation [Unknown]
  - Pulmonary necrosis [Unknown]
